FAERS Safety Report 16094987 (Version 1)
Quarter: 2019Q1

REPORT INFORMATION
  Report Type: Spontaneous
  Country: US (occurrence: US)
  Receive Date: 20190218
  Receipt Date: 20190218
  Transmission Date: 20190418
  Serious: No
  Sender: FDA-Public Use
  Company Number: None

PATIENT
  Sex: Female

DRUGS (1)
  1. HUMIRA [Suspect]
     Active Substance: ADALIMUMAB
     Indication: COLITIS
     Dosage: ?          OTHER FREQUENCY:DAY 1;?
     Route: 058
     Dates: start: 20190115

REACTIONS (2)
  - Dizziness [None]
  - Drug ineffective [None]
